FAERS Safety Report 6753202-3 (Version None)
Quarter: 2010Q2

REPORT INFORMATION
  Report Type: 
  Country: None (occurrence: None)
  Receive Date: 20100603
  Receipt Date: 20100525
  Transmission Date: 20101027
  Serious: Yes (Hospitalization, Other)
  Sender: FDA-Public Use
  Company Number: GB-PFIZER INC-2010054175

PATIENT
  Age: 76 Year
  Sex: Female
  Weight: 76 kg

DRUGS (5)
  1. DEPO-MEDROL [Suspect]
     Indication: OSTEOARTHRITIS
     Dosage: 80 MG, 1X/DAY
     Route: 014
     Dates: start: 20100428, end: 20100428
  2. MARCAINE [Concomitant]
     Indication: OSTEOARTHRITIS
     Dosage: 10 ML, 1X/DAY
     Route: 014
     Dates: start: 20100428, end: 20100428
  3. CELEBREX [Concomitant]
     Dosage: 100 MG, 1X/DAY
     Route: 048
  4. LEVOTHYROXINE [Concomitant]
     Dosage: 100 UG, 1X/DAY
     Route: 048
  5. PARACETAMOL [Concomitant]
     Dosage: 500MG TO 1G, QID, AS NEEDED
     Route: 048

REACTIONS (8)
  - ALTERED STATE OF CONSCIOUSNESS [None]
  - BLOOD PRESSURE DECREASED [None]
  - HEART RATE INCREASED [None]
  - HYPERSENSITIVITY [None]
  - MUSCLE SPASMS [None]
  - NAUSEA [None]
  - OXYGEN SATURATION DECREASED [None]
  - RASH [None]
